FAERS Safety Report 18341069 (Version 1)
Quarter: 2020Q4

REPORT INFORMATION
  Report Type: Spontaneous
  Country: CA (occurrence: CA)
  Receive Date: 20201003
  Receipt Date: 20201003
  Transmission Date: 20210113
  Serious: Yes (Other)
  Sender: FDA-Public Use
  Company Number: CA-ACCORD-203675

PATIENT
  Age: 37 Year
  Sex: Female

DRUGS (11)
  1. PARACETAMOL [Concomitant]
     Active Substance: ACETAMINOPHEN
  2. ATIVAN [Concomitant]
     Active Substance: LORAZEPAM
  3. CYMBALTA [Concomitant]
     Active Substance: DULOXETINE HYDROCHLORIDE
  4. PREVACID [Concomitant]
     Active Substance: LANSOPRAZOLE
  5. DESOGESTREL AND ETHINYL ESTRADIOL [Concomitant]
     Active Substance: DESOGESTREL\ETHINYL ESTRADIOL
  6. LEUCOVORIN. [Concomitant]
     Active Substance: LEUCOVORIN
  7. METHOTREXATE. [Suspect]
     Active Substance: METHOTREXATE
     Indication: RHEUMATOID ARTHRITIS
     Dosage: 1 EVERY 1 WEEKS
  8. ACTEMRA [Suspect]
     Active Substance: TOCILIZUMAB
     Indication: RHEUMATOID ARTHRITIS
     Route: 058
  9. INDAPAMIDE/PERINDOPRIL [Suspect]
     Active Substance: INDAPAMIDE\PERINDOPRIL
     Indication: HYPERTENSION
  10. CITALOPRAM [Concomitant]
     Active Substance: CITALOPRAM HYDROBROMIDE
  11. PERINDOPRIL [Concomitant]
     Active Substance: PERINDOPRIL

REACTIONS (18)
  - Dyspnoea [Not Recovered/Not Resolved]
  - Influenza [Not Recovered/Not Resolved]
  - Chills [Not Recovered/Not Resolved]
  - Nasopharyngitis [Not Recovered/Not Resolved]
  - Nausea [Not Recovered/Not Resolved]
  - Rheumatoid arthritis [Not Recovered/Not Resolved]
  - Constipation [Not Recovered/Not Resolved]
  - Fatigue [Not Recovered/Not Resolved]
  - Respiratory tract congestion [Not Recovered/Not Resolved]
  - Rash erythematous [Not Recovered/Not Resolved]
  - Sinusitis [Not Recovered/Not Resolved]
  - Hypertension [Not Recovered/Not Resolved]
  - Aphthous ulcer [Not Recovered/Not Resolved]
  - Bacterial infection [Not Recovered/Not Resolved]
  - Cough [Not Recovered/Not Resolved]
  - Dizziness [Not Recovered/Not Resolved]
  - Fungal infection [Not Recovered/Not Resolved]
  - Injection site swelling [Not Recovered/Not Resolved]
